FAERS Safety Report 15675377 (Version 1)
Quarter: 2018Q4

REPORT INFORMATION
  Report Type: Report from Study
  Country: DE (occurrence: DE)
  Receive Date: 20181130
  Receipt Date: 20181130
  Transmission Date: 20190205
  Serious: Yes (Other)
  Sender: FDA-Public Use
  Company Number: DE-KYOWAKIRIN-2018BKK009489

PATIENT

DRUGS (4)
  1. BUROSUMAB [Suspect]
     Active Substance: BUROSUMAB
     Indication: HEREDITARY HYPOPHOSPHATAEMIC RICKETS
     Dosage: 8 MG
     Route: 058
     Dates: start: 20181123
  2. BUROSUMAB [Suspect]
     Active Substance: BUROSUMAB
     Dosage: 7 MG
     Route: 058
     Dates: start: 20181024, end: 20181107
  3. BUROSUMAB [Suspect]
     Active Substance: BUROSUMAB
     Dosage: 5 MG
     Route: 058
     Dates: start: 20180827, end: 20180911
  4. BUROSUMAB [Suspect]
     Active Substance: BUROSUMAB
     Dosage: 6.5 MG
     Route: 058
     Dates: start: 20180926, end: 20181010

REACTIONS (3)
  - Gastroenteritis norovirus [Recovered/Resolved]
  - Incorrect dose administered [Not Recovered/Not Resolved]
  - Oxygen saturation decreased [Recovered/Resolved]

NARRATIVE: CASE EVENT DATE: 20180827
